FAERS Safety Report 6223803-X (Version None)
Quarter: 2009Q2

REPORT INFORMATION
  Report Type: 
  Country: None (occurrence: None)
  Receive Date: 20090611
  Receipt Date: 20090323
  Transmission Date: 20091009
  Serious: No
  Sender: FDA-Public Use
  Company Number: US-ABBOTT-09P-163-0558831-00

PATIENT
  Sex: Female
  Weight: 79.45 kg

DRUGS (5)
  1. HUMIRA [Suspect]
     Indication: RHEUMATOID ARTHRITIS
     Route: 058
     Dates: start: 20020101, end: 20060726
  2. HUMIRA [Suspect]
  3. HUMIRA [Suspect]
  4. HUMIRA [Suspect]
     Indication: RHEUMATOID ARTHRITIS
     Route: 058
     Dates: start: 20081023
  5. OXYCODONE [Concomitant]
     Indication: PAIN
     Dosage: EVERY 8 HOURS AS NEEDED
     Route: 048

REACTIONS (4)
  - BRONCHITIS [None]
  - MOOD SWINGS [None]
  - NASOPHARYNGITIS [None]
  - TOOTH INFECTION [None]
